FAERS Safety Report 13805883 (Version 2)
Quarter: 2018Q3

REPORT INFORMATION
  Report Type: Spontaneous
  Country: US (occurrence: US)
  Receive Date: 20170728
  Receipt Date: 20180921
  Transmission Date: 20181010
  Serious: No
  Sender: FDA-Public Use
  Company Number: US-IGSA-GTI004294

PATIENT
  Age: 75 Year
  Sex: Female
  Weight: 67.7 kg

DRUGS (12)
  1. CO Q 10                            /00517201/ [Concomitant]
     Indication: NUTRITIONAL SUPPLEMENTATION
     Dosage: UNK
  2. PEPCID                             /06376601/ [Concomitant]
     Indication: PREMEDICATION
     Dosage: UNK
  3. GAMUNEX?C [Suspect]
     Active Substance: HUMAN IMMUNOGLOBULIN G
     Indication: SELECTIVE IGA IMMUNODEFICIENCY
  4. GAMUNEX?C [Suspect]
     Active Substance: HUMAN IMMUNOGLOBULIN G
     Indication: SELECTIVE IGG SUBCLASS DEFICIENCY
     Dosage: 3.5 ML, UNK
     Route: 058
     Dates: start: 201512, end: 201605
  5. GAMUNEX?C [Suspect]
     Active Substance: HUMAN IMMUNOGLOBULIN G
     Indication: HYPOGAMMAGLOBULINAEMIA
     Dosage: 3.5 ML, UNK
     Route: 058
     Dates: start: 201412
  6. CHOLESTEREX [Concomitant]
     Indication: NUTRITIONAL SUPPLEMENTATION
     Dosage: UNK
  7. VITAMINS                           /00067501/ [Concomitant]
     Active Substance: VITAMINS
     Indication: NUTRITIONAL SUPPLEMENTATION
     Dosage: UNK
  8. CALCIUM [Concomitant]
     Active Substance: CALCIUM
     Indication: NUTRITIONAL SUPPLEMENTATION
     Dosage: UNK
  9. FOLIC ACID. [Concomitant]
     Active Substance: FOLIC ACID
     Indication: NUTRITIONAL SUPPLEMENTATION
     Dosage: UNK
  10. TYLENOL [Concomitant]
     Active Substance: ACETAMINOPHEN
     Indication: PREMEDICATION
     Dosage: UNK
  11. BENADRYL [Concomitant]
     Active Substance: DIPHENHYDRAMINE HYDROCHLORIDE
     Indication: PREMEDICATION
     Dosage: UNK
  12. VITAMINA D [Concomitant]
     Indication: NUTRITIONAL SUPPLEMENTATION
     Dosage: UNK

REACTIONS (9)
  - Weight increased [Recovered/Resolved]
  - Flushing [Recovered/Resolved]
  - Arthralgia [Recovered/Resolved]
  - Gait disturbance [Recovered/Resolved]
  - Generalised erythema [Recovered/Resolved]
  - Myalgia [Recovered/Resolved]
  - Peripheral swelling [Recovered/Resolved]
  - Pyrexia [Recovered/Resolved]
  - Blood pressure increased [Recovered/Resolved]

NARRATIVE: CASE EVENT DATE: 201412
